FAERS Safety Report 14170997 (Version 1)
Quarter: 2017Q4

REPORT INFORMATION
  Report Type: Spontaneous
  Country: JP (occurrence: JP)
  Receive Date: 20171108
  Receipt Date: 20171108
  Transmission Date: 20180321
  Serious: Yes (Other)
  Sender: FDA-Public Use
  Company Number: JP-SA-2017SA217862

PATIENT
  Sex: Female

DRUGS (5)
  1. MYSLEE [Suspect]
     Active Substance: ZOLPIDEM TARTRATE
     Indication: PRODUCT USED FOR UNKNOWN INDICATION
     Route: 048
  2. YOKUKANSAN [Suspect]
     Active Substance: HERBALS
     Indication: PRODUCT USED FOR UNKNOWN INDICATION
     Route: 048
  3. LEXAPRO [Suspect]
     Active Substance: ESCITALOPRAM OXALATE
     Indication: PRODUCT USED FOR UNKNOWN INDICATION
     Route: 048
  4. HORIZON [Suspect]
     Active Substance: DIAZEPAM
     Indication: MENTAL DISORDER
     Dosage: 2-5 MG PER DAY
     Route: 048
  5. HIRNAMIN [Suspect]
     Active Substance: PHENOTHIAZINE
     Indication: MENTAL DISORDER
     Dosage: 40-225 MG PER DAY
     Route: 048

REACTIONS (2)
  - Premature delivery [Unknown]
  - Maternal exposure during pregnancy [Unknown]
